FAERS Safety Report 15556595 (Version 1)
Quarter: 2018Q4

REPORT INFORMATION
  Report Type: Report from Study
  Country: CA (occurrence: CA)
  Receive Date: 20181026
  Receipt Date: 20181026
  Transmission Date: 20190205
  Serious: Yes (Death)
  Sender: FDA-Public Use
  Company Number: CA-PFIZER INC-2018434886

PATIENT
  Age: 61 Year
  Sex: Female

DRUGS (6)
  1. AMPHETAMINE [Suspect]
     Active Substance: AMPHETAMINE
     Dosage: UNK
     Route: 065
  2. COCAINE [Suspect]
     Active Substance: COCAINE
     Dosage: UNK
     Route: 055
  3. LORAZEPAM. [Suspect]
     Active Substance: LORAZEPAM
     Dosage: UNK
     Route: 048
  4. METHAMPHETAMINE [METAMFETAMINE] [Suspect]
     Active Substance: METHAMPHETAMINE
     Dosage: UNK
     Route: 065
  5. ACETAMINOPHEN. [Suspect]
     Active Substance: ACETAMINOPHEN
     Dosage: UNK
     Route: 048
  6. CODEINE [Suspect]
     Active Substance: CODEINE
     Dosage: UNK
     Route: 048

REACTIONS (4)
  - Toxicity to various agents [Fatal]
  - Substance abuse [Fatal]
  - Completed suicide [Fatal]
  - Intentional self-injury [Fatal]
